FAERS Safety Report 13061492 (Version 1)
Quarter: 2016Q4

REPORT INFORMATION
  Report Type: Spontaneous
  Country: US (occurrence: US)
  Receive Date: 20161226
  Receipt Date: 20161226
  Transmission Date: 20170207
  Serious: No
  Sender: FDA-Public Use
  Company Number: US-NOVEN PHARMACEUTICALS, INC.-US2015001363

PATIENT
  Age: 51 Year
  Sex: Female

DRUGS (8)
  1. MINIVELLE [Suspect]
     Active Substance: ESTRADIOL
     Indication: NIGHT SWEATS
     Dosage: 0.075 MG, UNKNOWN
     Route: 062
     Dates: start: 201512
  2. MULTIVITAMINS [Concomitant]
     Active Substance: VITAMINS
  3. LOPRIL [Concomitant]
     Active Substance: LISINOPRIL
     Indication: BLOOD PRESSURE ABNORMAL
     Dosage: 5 - 20 MG
  4. PRAVASTATIN. [Concomitant]
     Active Substance: PRAVASTATIN
     Indication: BLOOD CHOLESTEROL
     Dosage: 40 MG, UNK
  5. HYDROCHLOROTHIAZIDE. [Concomitant]
     Active Substance: HYDROCHLOROTHIAZIDE
     Indication: DIURETIC THERAPY
     Dosage: 25 MG, UNK
  6. BUTRANS [Concomitant]
     Active Substance: BUPRENORPHINE
     Dosage: 10 MG, UNK
  7. MINIVELLE [Suspect]
     Active Substance: ESTRADIOL
     Indication: HOT FLUSH
     Dosage: 0.1 MG, UNKNOWN
     Route: 062
     Dates: start: 201511, end: 201512
  8. COQ 10 [Concomitant]
     Active Substance: UBIDECARENONE
     Dosage: 400 MG, UNK

REACTIONS (7)
  - Headache [Unknown]
  - Irritability [Unknown]
  - Lethargy [Unknown]
  - Fluid retention [Unknown]
  - Depression [Unknown]
  - Breast tenderness [Unknown]
  - Mood swings [Unknown]

NARRATIVE: CASE EVENT DATE: 201511
